FAERS Safety Report 21685321 (Version 1)
Quarter: 2022Q4

REPORT INFORMATION
  Report Type: Spontaneous
  Country: US (occurrence: US)
  Receive Date: 20221206
  Receipt Date: 20221206
  Transmission Date: 20230112
  Serious: Yes (Hospitalization)
  Sender: FDA-Public Use
  Company Number: US-STRIDES ARCOLAB LIMITED-2022SP016233

PATIENT
  Age: 55 Year
  Sex: Female

DRUGS (8)
  1. DEXAMETHASONE [Suspect]
     Active Substance: DEXAMETHASONE
     Indication: Acute leukaemia
     Dosage: UNK, SINGLE, (HYPER-CVAD- INDUCTION)
     Route: 065
  2. METHOTREXATE [Suspect]
     Active Substance: METHOTREXATE
     Indication: Acute leukaemia
     Dosage: UNK
     Route: 037
  3. ADRIAMYCIN [Suspect]
     Active Substance: DOXORUBICIN HYDROCHLORIDE
     Indication: Acute leukaemia
     Dosage: UNK, SINGLE, (HYPER-CVAD- INDUCTION)
     Route: 065
  4. CYCLOPHOSPHAMIDE [Suspect]
     Active Substance: CYCLOPHOSPHAMIDE
     Indication: Acute leukaemia
     Dosage: UNK, SINGLE, (HYPER-CVAD- INDUCTION)
     Route: 065
  5. VINCRISTINE [Suspect]
     Active Substance: VINCRISTINE
     Indication: Acute leukaemia
     Dosage: UNK, SINGLE, (HYPER-CVAD- INDUCTION)
     Route: 065
  6. MIDOSTAURIN [Suspect]
     Active Substance: MIDOSTAURIN
     Indication: Acute leukaemia
     Dosage: UNK, SINGLE (HYPER- INDUCTION)
     Route: 065
  7. CYTARABINE [Suspect]
     Active Substance: CYTARABINE
     Indication: Acute leukaemia
     Dosage: UNK
     Route: 065
  8. HYDROXYUREA [Concomitant]
     Active Substance: HYDROXYUREA
     Indication: Product used for unknown indication
     Dosage: UNK
     Route: 065

REACTIONS (10)
  - Jugular vein thrombosis [Unknown]
  - Febrile neutropenia [Unknown]
  - Acute myocardial infarction [Unknown]
  - Cerebrovascular accident [Unknown]
  - Epistaxis [Unknown]
  - Otitis media acute [Unknown]
  - Herpes simplex [Unknown]
  - Influenza [Unknown]
  - Ulcer [Unknown]
  - Drug ineffective [Unknown]
